FAERS Safety Report 11309187 (Version 3)
Quarter: 2015Q3

REPORT INFORMATION
  Report Type: Spontaneous
  Country: US (occurrence: US)
  Receive Date: 20150724
  Receipt Date: 20150928
  Transmission Date: 20151125
  Serious: Yes (Other)
  Sender: FDA-Public Use
  Company Number: US-PFIZER INC-2015243142

PATIENT
  Age: 58 Year
  Sex: Female
  Weight: 66 kg

DRUGS (2)
  1. LYRICA [Suspect]
     Active Substance: PREGABALIN
     Dosage: 150 MG, 2X/DAY
  2. LYRICA [Suspect]
     Active Substance: PREGABALIN
     Indication: FIBROMYALGIA
     Dosage: 100 MG, 3X/DAY
     Route: 048

REACTIONS (11)
  - Hepatic encephalopathy [Unknown]
  - Impaired work ability [Unknown]
  - Liver disorder [Unknown]
  - Nervous system disorder [Unknown]
  - Hepatic failure [Unknown]
  - Gait disturbance [Unknown]
  - Memory impairment [Unknown]
  - Impaired driving ability [Unknown]
  - Hepatic cirrhosis [Unknown]
  - Blood potassium abnormal [Unknown]
  - Malaise [Unknown]
